FAERS Safety Report 13136146 (Version 1)
Quarter: 2017Q1

REPORT INFORMATION
  Report Type: Spontaneous
  Country: DK (occurrence: DK)
  Receive Date: 20170121
  Receipt Date: 20170121
  Transmission Date: 20170428
  Serious: Yes (Other)
  Sender: FDA-Public Use
  Company Number: DK-SUN PHARMACEUTICAL INDUSTRIES LTD-2017R1-131784

PATIENT
  Sex: Female

DRUGS (3)
  1. OCTREOTIDE. [Suspect]
     Active Substance: OCTREOTIDE
     Indication: HYPOGLYCAEMIA
     Dosage: UNK
     Route: 065
  2. NORDITROPIN [Suspect]
     Active Substance: SOMATROPIN
     Indication: HYPOGLYCAEMIA
     Dosage: UNK
     Route: 065
  3. DIAZOXIDE [Suspect]
     Active Substance: DIAZOXIDE
     Indication: HYPOGLYCAEMIA
     Dosage: UNK
     Route: 065

REACTIONS (1)
  - Drug ineffective [Unknown]
